FAERS Safety Report 20300265 (Version 1)
Quarter: 2022Q1

REPORT INFORMATION
  Report Type: Spontaneous
  Country: DE (occurrence: DE)
  Receive Date: 20220105
  Receipt Date: 20220105
  Transmission Date: 20220423
  Serious: Yes (Hospitalization)
  Sender: FDA-Public Use
  Company Number: DE-ADRED-07339-01

PATIENT
  Age: 81 Year
  Sex: Female
  Weight: 50 kg

DRUGS (3)
  1. TORSEMIDE [Suspect]
     Active Substance: TORSEMIDE
     Indication: Product used for unknown indication
     Dosage: 5 MILLIGRAM, QD, (5 MG, 1-0-0-0, TABLET)
     Route: 048
  2. EDOXABAN [Suspect]
     Active Substance: EDOXABAN
     Indication: Product used for unknown indication
     Dosage: 30 MILLIGRAM, QD, (30 MG, 1-0-0-0, TABLET)
     Route: 048
  3. METAMIZOL [Concomitant]
     Active Substance: METAMIZOLE SODIUM
     Dosage: 500 MILLIGRAM, PRN, (500 MG, DEMAND, TROPFEN)
     Route: 048

REACTIONS (5)
  - Weight decreased [Unknown]
  - Pain [Unknown]
  - Lymphoedema [Unknown]
  - Oedema peripheral [Unknown]
  - Constipation [Unknown]
